FAERS Safety Report 19072662 (Version 1)
Quarter: 2021Q1

REPORT INFORMATION
  Report Type: Report from Study
  Country: US (occurrence: US)
  Receive Date: 20210330
  Receipt Date: 20210330
  Transmission Date: 20210420
  Serious: Yes (Hospitalization, Other)
  Sender: FDA-Public Use
  Company Number: NVSC2021US064590

PATIENT
  Age: 47 Year
  Sex: Male

DRUGS (3)
  1. ENTRESTO [Suspect]
     Active Substance: SACUBITRIL\VALSARTAN
     Indication: CARDIAC FAILURE
     Dosage: 1 DF, (49/51 MG) BID
     Route: 048
     Dates: start: 20210301
  2. ATORVASTATIN [Suspect]
     Active Substance: ATORVASTATIN
     Indication: BLOOD CHOLESTEROL INCREASED
     Dosage: UNK
     Route: 048
     Dates: start: 2019
  3. LISINOPRIL. [Suspect]
     Active Substance: LISINOPRIL
     Indication: HYPERTENSION
     Dosage: UNK
     Route: 065
     Dates: start: 2014, end: 2017

REACTIONS (12)
  - Condition aggravated [Unknown]
  - Burning sensation [Unknown]
  - Peripheral swelling [Recovered/Resolved]
  - Periorbital cellulitis [Unknown]
  - Pain in extremity [Recovering/Resolving]
  - Peripheral swelling [Unknown]
  - Pharyngeal swelling [Recovered/Resolved]
  - Drug hypersensitivity [Recovered/Resolved]
  - Sepsis [Unknown]
  - Cough [Recovered/Resolved]
  - Gait disturbance [Not Recovered/Not Resolved]
  - Drug hypersensitivity [Recovered/Resolved]

NARRATIVE: CASE EVENT DATE: 2017
